FAERS Safety Report 7880262-9 (Version None)
Quarter: 2011Q4

REPORT INFORMATION
  Report Type: 
  Country: None (occurrence: None)
  Receive Date: 20111101
  Receipt Date: 20111027
  Transmission Date: 20120403
  Serious: Yes (Hospitalization, Other)
  Sender: FDA-Public Use
  Company Number: JP-PFIZER INC-2011252418

PATIENT
  Age: 87 Year
  Sex: Male

DRUGS (2)
  1. ATELEC [Suspect]
     Dosage: 10 MG, DAILY
     Route: 048
     Dates: end: 20111012
  2. EPLERENONE [Suspect]
     Dosage: 50 MG/DAY
     Route: 048
     Dates: end: 20111012

REACTIONS (2)
  - GAIT DISTURBANCE [None]
  - BLOOD CREATINE PHOSPHOKINASE INCREASED [None]
